FAERS Safety Report 22308406 (Version 1)
Quarter: 2023Q2

REPORT INFORMATION
  Report Type: Spontaneous
  Country: US (occurrence: None)
  Receive Date: 20230511
  Receipt Date: 20230511
  Transmission Date: 20230721
  Serious: No
  Sender: FDA-Public Use
  Company Number: US-ROCHE-3217081

PATIENT
  Sex: Male

DRUGS (3)
  1. OCREVUS [Suspect]
     Active Substance: OCRELIZUMAB
     Indication: Relapsing-remitting multiple sclerosis
     Route: 064
     Dates: start: 20201005, end: 20201005
  2. OCREVUS [Suspect]
     Active Substance: OCRELIZUMAB
     Route: 064
     Dates: start: 20210517
  3. OCREVUS [Suspect]
     Active Substance: OCRELIZUMAB
     Route: 064
     Dates: start: 20220503

REACTIONS (3)
  - Dysstasia [Not Recovered/Not Resolved]
  - Dysphagia [Not Recovered/Not Resolved]
  - Foetal exposure during pregnancy [Unknown]
